FAERS Safety Report 13489933 (Version 1)
Quarter: 2017Q2

REPORT INFORMATION
  Report Type: Spontaneous
  Country: US (occurrence: US)
  Receive Date: 20170426
  Receipt Date: 20170426
  Transmission Date: 20170830
  Serious: Yes (Other)
  Sender: FDA-Public Use
  Company Number: US-MAYNE PHARMA-2017MYN000688

PATIENT

DRUGS (2)
  1. OXAZEPAM. [Interacting]
     Active Substance: OXAZEPAM
     Dosage: 10 MG, UNK
  2. CLOZAPINE. [Suspect]
     Active Substance: CLOZAPINE
     Dosage: 100 MG, UNK

REACTIONS (2)
  - Coma [Recovered/Resolved]
  - Drug administration error [Unknown]
